FAERS Safety Report 13839103 (Version 1)
Quarter: 2017Q3

REPORT INFORMATION
  Report Type: Spontaneous
  Country: US (occurrence: US)
  Receive Date: 20170806
  Receipt Date: 20170806
  Transmission Date: 20171127
  Serious: Yes (Hospitalization)
  Sender: FDA-Public Use
  Company Number: None

PATIENT
  Age: 55 Year
  Sex: Female
  Weight: 77 kg

DRUGS (1)
  1. INVOKAMET [Suspect]
     Active Substance: CANAGLIFLOZIN\METFORMIN HYDROCHLORIDE
     Route: 048

REACTIONS (5)
  - Diabetic ketoacidosis [None]
  - Vomiting [None]
  - Metabolic acidosis [None]
  - Nausea [None]
  - Blood glucose increased [None]

NARRATIVE: CASE EVENT DATE: 20170802
